FAERS Safety Report 8885715 (Version 1)
Quarter: 2012Q4

REPORT INFORMATION
  Report Type: 
  Country: US (occurrence: US)
  Receive Date: 20121102
  Receipt Date: 20121102
  Transmission Date: 20130627
  Serious: Yes (Other)
  Sender: FDA-Public Use
  Company Number: US-PFIZER INC-2012271387

PATIENT
  Age: 68 Year
  Sex: Female
  Weight: 72.56 kg

DRUGS (6)
  1. LYRICA [Suspect]
     Indication: FIBROMYALGIA
     Dosage: 50 mg, 2x/day
     Route: 048
     Dates: start: 2011, end: 2011
  2. LYRICA [Suspect]
     Dosage: 75 mg, 2x/day
     Route: 048
     Dates: start: 2011, end: 2011
  3. LYRICA [Suspect]
     Dosage: 100 mg, 2x/day
     Route: 048
     Dates: start: 2011, end: 2011
  4. LYRICA [Suspect]
     Dosage: UNK, 2x/day
     Route: 048
     Dates: start: 2011, end: 2011
  5. TEKTURNA [Concomitant]
     Indication: BLOOD PRESSURE HIGH
     Dosage: UNK
  6. SAVELLA [Concomitant]
     Indication: FIBROMYALGIA
     Dosage: 75 mg, 3x/day
     Route: 048
     Dates: start: 2011

REACTIONS (7)
  - Aphagia [Recovered/Resolved]
  - Drug ineffective [Unknown]
  - Dry mouth [Not Recovered/Not Resolved]
  - Oedema mouth [Recovered/Resolved]
  - Lip swelling [Recovered/Resolved]
  - Speech disorder [Recovered/Resolved]
  - Drug intolerance [Unknown]
